FAERS Safety Report 7495257-7 (Version None)
Quarter: 2011Q2

REPORT INFORMATION
  Report Type: 
  Country: None (occurrence: None)
  Receive Date: 20110522
  Receipt Date: 20110509
  Transmission Date: 20111010
  Serious: Yes (Hospitalization)
  Sender: FDA-Public Use
  Company Number: GB-MYLANLABS-2011S1009618

PATIENT
  Age: 5 Year
  Sex: Male

DRUGS (8)
  1. GENTAMICIN [Suspect]
     Indication: PNEUMONIA MYCOPLASMAL
  2. CLOBAZAM [Concomitant]
     Indication: PRODUCT USED FOR UNKNOWN INDICATION
  3. LAMOTRIGINE [Suspect]
     Indication: CONVULSION
  4. CEFOTAXIME [Suspect]
     Indication: PNEUMONIA MYCOPLASMAL
  5. PIPERACILLIN [Suspect]
     Indication: PNEUMONIA MYCOPLASMAL
  6. ERYTHROMYCIN [Suspect]
     Indication: PNEUMONIA MYCOPLASMAL
  7. PHENYTOIN [Suspect]
     Indication: STATUS EPILEPTICUS
  8. VALPROATE SODIUM [Concomitant]
     Indication: PRODUCT USED FOR UNKNOWN INDICATION

REACTIONS (9)
  - AKINESIA [None]
  - LEARNING DISORDER [None]
  - APHASIA [None]
  - DYSTONIA [None]
  - COGNITIVE DISORDER [None]
  - MOVEMENT DISORDER [None]
  - BRAIN OEDEMA [None]
  - STATUS EPILEPTICUS [None]
  - HYPOTONIA [None]
